FAERS Safety Report 5836934-0 (Version None)
Quarter: 2008Q3

REPORT INFORMATION
  Report Type: 
  Country: None (occurrence: None)
  Receive Date: 20080807
  Receipt Date: 20080730
  Transmission Date: 20090109
  Serious: Yes (Other)
  Sender: FDA-Public Use
  Company Number: JP-ABBOTT-08P-087-0467490-00

PATIENT
  Age: 1 Day
  Weight: 0.514 kg

DRUGS (3)
  1. LOPINAVIR AND RITONAVIR [Suspect]
     Indication: DRUG EXPOSURE DURING PREGNANCY
     Route: 064
  2. ZIDOVUDINE [Suspect]
     Indication: DRUG EXPOSURE DURING PREGNANCY
     Route: 064
  3. ZIDOVUDINE [Suspect]
     Route: 042

REACTIONS (6)
  - ACUTE RESPIRATORY DISTRESS SYNDROME [None]
  - BRONCHOPULMONARY DYSPLASIA [None]
  - DRUG EXPOSURE DURING PREGNANCY [None]
  - MECONIUM PLUG SYNDROME [None]
  - OSTEOMALACIA [None]
  - PULMONARY HYPERTENSION [None]
